FAERS Safety Report 5955088-3 (Version None)
Quarter: 2008Q4

REPORT INFORMATION
  Report Type: 
  Country: None (occurrence: None)
  Receive Date: 20081113
  Receipt Date: 20081113
  Transmission Date: 20090506
  Serious: No
  Sender: FDA-Public Use
  Company Number: None

PATIENT
  Sex: Female
  Weight: 72.5755 kg

DRUGS (1)
  1. CHANTIX [Suspect]
     Indication: SMOKING CESSATION THERAPY
     Dosage: 2 X A DAY
     Dates: start: 20070101, end: 20070501

REACTIONS (9)
  - AFFECT LABILITY [None]
  - ARTHRALGIA [None]
  - DYSPHONIA [None]
  - DYSPNOEA [None]
  - FEELING ABNORMAL [None]
  - MEMORY IMPAIRMENT [None]
  - MYALGIA [None]
  - NERVOUS SYSTEM DISORDER [None]
  - TYPE 2 DIABETES MELLITUS [None]
